FAERS Safety Report 9562102 (Version 2)
Quarter: 2013Q4

REPORT INFORMATION
  Report Type: Spontaneous
  Country: JP (occurrence: JP)
  Receive Date: 20130927
  Receipt Date: 20131114
  Transmission Date: 20140711
  Serious: Yes (Other)
  Sender: FDA-Public Use
  Company Number: JP-PFIZER INC-2013274091

PATIENT
  Age: 6 Decade
  Sex: 0

DRUGS (2)
  1. VFEND [Suspect]
     Dosage: UNK
  2. VFEND [Suspect]
     Dosage: UNK
     Route: 048
     Dates: start: 20130919

REACTIONS (1)
  - Ileus [Unknown]
